FAERS Safety Report 22145553 (Version 4)
Quarter: 2023Q2

REPORT INFORMATION
  Report Type: Report from Study
  Country: GB (occurrence: GB)
  Receive Date: 20230328
  Receipt Date: 20230623
  Transmission Date: 20230721
  Serious: Yes (Other)
  Sender: FDA-Public Use
  Company Number: GB-002147023-NVSC2023GB065381

PATIENT
  Age: 51 Year
  Sex: Male

DRUGS (1)
  1. OMNITROPE [Suspect]
     Active Substance: SOMATROPIN
     Indication: Growth hormone deficiency
     Dosage: 10 MG, QD
     Route: 058
     Dates: start: 202302

REACTIONS (4)
  - Neoplasm [Unknown]
  - Fatigue [Unknown]
  - Injection site bruising [Unknown]
  - Injection site pain [Unknown]
